FAERS Safety Report 19916410 (Version 1)
Quarter: 2021Q4

REPORT INFORMATION
  Report Type: Spontaneous
  Country: US (occurrence: US)
  Receive Date: 20211005
  Receipt Date: 20211005
  Transmission Date: 20220303
  Serious: No
  Sender: FDA-Public Use
  Company Number: US-BION-009899

PATIENT
  Sex: Female

DRUGS (1)
  1. PROGESTERONE [Suspect]
     Active Substance: PROGESTERONE
     Indication: Product used for unknown indication
     Dosage: STRENGTH: 100MG AND 200MG
     Route: 048
     Dates: start: 20210519, end: 20210615

REACTIONS (6)
  - Dyspnoea [Unknown]
  - Panic attack [Unknown]
  - Chest pain [Unknown]
  - Dizziness [Unknown]
  - Depression [Unknown]
  - Anxiety [Unknown]
